FAERS Safety Report 16681595 (Version 5)
Quarter: 2021Q3

REPORT INFORMATION
  Report Type: Report from Study
  Country: US (occurrence: US)
  Receive Date: 20190808
  Receipt Date: 20210902
  Transmission Date: 20211014
  Serious: Yes (Other)
  Sender: FDA-Public Use
  Company Number: US-SHIRE-US201924927

PATIENT
  Age: 40 Year
  Sex: Female

DRUGS (4)
  1. PARATHYROID HORMONE [Suspect]
     Active Substance: PARATHYROID HORMONE
     Indication: HYPOPARATHYROIDISM
     Dosage: 100 MICROGRAM, QD
     Route: 058
  2. PARATHYROID HORMONE [Suspect]
     Active Substance: PARATHYROID HORMONE
     Indication: HYPOPARATHYROIDISM
     Dosage: 100 MICROGRAM, QD
     Route: 058
  3. FORTEO [Suspect]
     Active Substance: TERIPARATIDE
     Indication: PRODUCT USED FOR UNKNOWN INDICATION
     Route: 065
  4. PARATHYROID HORMONE [Suspect]
     Active Substance: PARATHYROID HORMONE
     Indication: HYPOPARATHYROIDISM
     Dosage: 100 MICROGRAM, QD
     Route: 058

REACTIONS (8)
  - Nausea [Unknown]
  - Illness [Unknown]
  - Injection site reaction [Unknown]
  - Paraesthesia [Recovered/Resolved]
  - Mental status changes [Unknown]
  - Blood calcium decreased [Recovered/Resolved]
  - Product supply issue [Unknown]
  - Recalled product [Unknown]

NARRATIVE: CASE EVENT DATE: 20201008
